FAERS Safety Report 10215642 (Version 1)
Quarter: 2014Q2

REPORT INFORMATION
  Report Type: Spontaneous
  Country: CN (occurrence: CN)
  Receive Date: 20140604
  Receipt Date: 20140604
  Transmission Date: 20141212
  Serious: Yes (Other)
  Sender: FDA-Public Use
  Company Number: CN-PFIZER INC-2014152352

PATIENT
  Age: 79 Year
  Sex: Male

DRUGS (3)
  1. ATORVASTATIN CALCIUM [Suspect]
     Indication: CORONARY ARTERY DISEASE
     Dosage: 1 DF, 1X/DAY
     Route: 048
     Dates: start: 20130113, end: 20130314
  2. ISOSORBIDE MONONITRATE [Suspect]
     Indication: CORONARY ARTERY DISEASE
     Dosage: 1 DF, 1X/DAY
     Route: 048
     Dates: start: 20130113, end: 20130314
  3. ASPIRIN ENTERIC COATED K.P. [Suspect]
     Dosage: 1 DF, 1X/DAY
     Route: 048
     Dates: start: 20130113, end: 20130314

REACTIONS (2)
  - Renal impairment [Recovered/Resolved]
  - Peripheral swelling [Recovered/Resolved]
